FAERS Safety Report 7867327-2 (Version None)
Quarter: 2011Q4

REPORT INFORMATION
  Report Type: 
  Country: None (occurrence: None)
  Receive Date: 20111028
  Receipt Date: 20111020
  Transmission Date: 20120403
  Serious: Yes (Hospitalization)
  Sender: FDA-Public Use
  Company Number: FR-PFIZER INC-2011254620

PATIENT
  Age: 52 Year
  Sex: Female

DRUGS (11)
  1. MYOLASTAN [Suspect]
     Dosage: 50 MG
     Route: 048
     Dates: start: 20110820, end: 20110830
  2. ROVAMYCIN [Suspect]
     Indication: PNEUMONIA
     Dosage: 1 500 000 UI
     Dates: start: 20110825, end: 20110826
  3. MORPHINE SULFATE [Suspect]
     Dosage: 10 MG
     Route: 048
     Dates: start: 20110820, end: 20110828
  4. KEPPRA [Concomitant]
     Dosage: UNK
     Dates: start: 20110818
  5. PRIMPERAN TAB [Suspect]
     Dosage: 10 MG
     Route: 048
     Dates: start: 20110821, end: 20110828
  6. AUGMENTIN [Suspect]
     Indication: PNEUMONIA
     Dosage: 500/62.5 MG
     Dates: start: 20110825, end: 20110825
  7. ACUPAN [Suspect]
     Dosage: UNK
     Dates: start: 20110819, end: 20110830
  8. POTASSIUM CHLORIDE [Concomitant]
     Dosage: UNK
     Dates: end: 20110826
  9. NICARDIPINE HCL [Concomitant]
  10. PIPERACILLIN AND TAZOBACTAM [Suspect]
     Indication: PNEUMONIA
     Dosage: 4 G
     Dates: start: 20110825, end: 20110830
  11. LOVENOX [Concomitant]

REACTIONS (3)
  - LUNG DISORDER [None]
  - HYPERSENSITIVITY [None]
  - PYREXIA [None]
